FAERS Safety Report 5160491-8 (Version None)
Quarter: 2006Q4

REPORT INFORMATION
  Report Type: 
  Country: None (occurrence: None)
  Receive Date: 20061129
  Receipt Date: 20061121
  Transmission Date: 20070319
  Serious: Yes (Other)
  Sender: FDA-Public Use
  Company Number: GB-BOEHRINGER INGELHEIM PHARMACEUTICALS, INC.-2006-DE-06187GD

PATIENT
  Age: 58 Year
  Sex: Male

DRUGS (3)
  1. NEVIRAPINE [Suspect]
     Indication: HIV INFECTION
     Dates: start: 19970101, end: 20000601
  2. DIDANOSINE [Suspect]
     Indication: HIV INFECTION
     Dates: start: 19970101, end: 20000601
  3. STAVUDINE [Suspect]
     Indication: HIV INFECTION
     Dates: start: 19970101, end: 20000601

REACTIONS (6)
  - ARTHRALGIA [None]
  - INFECTIVE MYOSITIS [None]
  - LIPODYSTROPHY ACQUIRED [None]
  - METASTASES TO BONE [None]
  - METASTATIC NEOPLASM [None]
  - PROSTATE CANCER [None]
